FAERS Safety Report 5241159-6 (Version None)
Quarter: 2007Q1

REPORT INFORMATION
  Report Type: 
  Country: None (occurrence: None)
  Receive Date: 20070220
  Receipt Date: 20070213
  Transmission Date: 20070707
  Serious: Yes (Death, Hospitalization)
  Sender: FDA-Public Use
  Company Number: 2004CG00035

PATIENT
  Age: 23111 Day
  Sex: Female
  Weight: 60 kg

DRUGS (3)
  1. ARIMIDEX [Suspect]
     Indication: BREAST CANCER
     Route: 048
     Dates: start: 20030515
  2. MOPRAL [Suspect]
     Indication: PROPHYLAXIS AGAINST GASTROINTESTINAL ULCER
     Route: 048
     Dates: start: 20031115, end: 20031201
  3. CORTANCYL [Suspect]
     Indication: CRYPTOGENIC ORGANISING PNEUMONIA
     Route: 048
     Dates: start: 20031030

REACTIONS (4)
  - DEEP VEIN THROMBOSIS [None]
  - DISSEMINATED INTRAVASCULAR COAGULATION [None]
  - DRUG INTERACTION [None]
  - PULMONARY EMBOLISM [None]
